FAERS Safety Report 25899758 (Version 2)
Quarter: 2025Q4

REPORT INFORMATION
  Report Type: Report from Study
  Country: US (occurrence: US)
  Receive Date: 20251009
  Receipt Date: 20251028
  Transmission Date: 20260117
  Serious: Yes (Hospitalization)
  Sender: ABBVIE
  Company Number: US-ABBVIE-6447958

PATIENT
  Age: 64 Year
  Sex: Male

DRUGS (1)
  1. SKYRIZI [Suspect]
     Active Substance: RISANKIZUMAB-RZAA
     Indication: Crohn^s disease
     Route: 058
     Dates: start: 20250313

REACTIONS (8)
  - Dehydration [Unknown]
  - Vomiting [Unknown]
  - Infection [Not Recovered/Not Resolved]
  - Heart rate increased [Unknown]
  - Pain [Unknown]
  - White blood cell count increased [Unknown]
  - Body temperature increased [Unknown]
  - Atrial fibrillation [Unknown]

NARRATIVE: CASE EVENT DATE: 20250101
